FAERS Safety Report 7533328 (Version 4)
Quarter: 2013Q4

REPORT INFORMATION
  Report Type: Spontaneous
  Country: US (occurrence: US)
  Receive Date: 20100809
  Receipt Date: 20131029
  Transmission Date: 20140711
  Serious: Yes (Hospitalization)
  Sender: FDA-Public Use
  Company Number: US-BAYER-201029751NA

PATIENT
  Age: 47 Year
  Sex: Female

DRUGS (7)
  1. YASMIN [Suspect]
     Dosage: UNK
     Dates: start: 2002, end: 2004
  2. YAZ [Suspect]
     Dosage: UNK
     Dates: start: 20040201
  3. MULTIVITAMIN PREPARATION + MINERAL SUPPLEMENT [Concomitant]
     Dosage: UNK
     Dates: start: 2005
  4. VITAMIN C [Concomitant]
     Dosage: UNK
     Dates: start: 2005
  5. BIAXIN [Concomitant]
     Dosage: 500 MG, BID
     Dates: start: 20040103
  6. ALBUTEROL INHALER [Concomitant]
     Dosage: UNK
     Dates: start: 20050831
  7. ADVIL [Concomitant]
     Dosage: UNK UNK, PRN

REACTIONS (7)
  - Transient ischaemic attack [Recovered/Resolved]
  - Cerebrovascular accident [Recovered/Resolved]
  - Speech disorder [Recovered/Resolved]
  - Hypoaesthesia [Recovered/Resolved]
  - Hyperhidrosis [Recovered/Resolved]
  - Nausea [Recovered/Resolved]
  - Dizziness [Recovered/Resolved]
